FAERS Safety Report 9099101 (Version 2)
Quarter: 2013Q4

REPORT INFORMATION
  Report Type: Spontaneous
  Country: US (occurrence: US)
  Receive Date: 20130213
  Receipt Date: 20131008
  Transmission Date: 20140711
  Serious: Yes (Other)
  Sender: FDA-Public Use
  Company Number: US-PFIZER INC-2013054661

PATIENT
  Age: 37 Year
  Sex: Female

DRUGS (4)
  1. LO/OVRAL-28 [Suspect]
     Indication: CONTRACEPTION
     Dosage: UNK
     Route: 048
     Dates: start: 20100729, end: 20110601
  2. LO/OVRAL-28 [Suspect]
     Dosage: UNK
     Route: 048
     Dates: start: 20110816
  3. LO/OVRAL-28 [Suspect]
     Dosage: UNK
     Route: 048
  4. LO/OVRAL-28 [Suspect]
     Dosage: UNK
     Route: 048

REACTIONS (4)
  - Product quality issue [Unknown]
  - Drug ineffective [Unknown]
  - Unintended pregnancy [Unknown]
  - Abortion spontaneous [Unknown]
